FAERS Safety Report 10305997 (Version 2)
Quarter: 2014Q4

REPORT INFORMATION
  Report Type: Spontaneous
  Country: IT (occurrence: IT)
  Receive Date: 20140715
  Receipt Date: 20141020
  Transmission Date: 20150528
  Serious: Yes (Life-Threatening, Hospitalization)
  Sender: FDA-Public Use
  Company Number: IT-TEVA-493514ISR

PATIENT
  Age: 79 Year
  Sex: Female

DRUGS (10)
  1. UNIPRIL - 5 MG COMPRESSE [Concomitant]
     Indication: HYPERTENSIVE HEART DISEASE
     Dosage: 2 DF
     Route: 048
     Dates: start: 20100101, end: 20140616
  2. LANOXIN - 0.125 MG COMPRESSE [Concomitant]
     Indication: PRODUCT USED FOR UNKNOWN INDICATION
     Dates: start: 20100101, end: 20140616
  3. NORVASC - 5 MG COMPRESSE [Concomitant]
     Indication: PRODUCT USED FOR UNKNOWN INDICATION
     Dates: start: 20100101, end: 20140616
  4. LANTUS [Suspect]
     Active Substance: INSULIN GLARGINE
     Indication: TYPE 2 DIABETES MELLITUS
     Dosage: 22 IU (INTERNATIONAL UNIT) DAILY; 22 IU DAILY
     Route: 058
     Dates: start: 20130101, end: 20140616
  5. APIDRA [Suspect]
     Active Substance: INSULIN GLULISINE
     Indication: TYPE 2 DIABETES MELLITUS
     Dosage: 36 IU (INTERNATIONAL UNIT) DAILY; 36 IU DAILY
     Route: 058
     Dates: start: 20130101, end: 20140616
  6. CRESTOR - 10 MG COMPRESSE RIVESTITE CON FILM [Concomitant]
     Indication: PRODUCT USED FOR UNKNOWN INDICATION
     Dates: start: 20100101, end: 20140616
  7. METFORMIN HYDROCHLORIDE. [Suspect]
     Active Substance: METFORMIN HYDROCHLORIDE
     Indication: TYPE 2 DIABETES MELLITUS
     Dosage: 1500 MILLIGRAM DAILY; 1500 MG DAILY
     Route: 048
     Dates: start: 20140101, end: 20140616
  8. SINTROM - 4 MG COMPRESSE QUADRISECABILI [Concomitant]
     Indication: ATRIAL FIBRILLATION
     Dates: start: 20100101, end: 20140616
  9. PARIET - 10 MG COMPRESSE GASTRORESISTENTI [Concomitant]
     Indication: PRODUCT USED FOR UNKNOWN INDICATION
  10. LASIX [Concomitant]
     Active Substance: FUROSEMIDE
     Indication: PRODUCT USED FOR UNKNOWN INDICATION

REACTIONS (1)
  - Hypoglycaemic coma [Recovered/Resolved]

NARRATIVE: CASE EVENT DATE: 20140616
